FAERS Safety Report 6300590-8 (Version None)
Quarter: 2009Q3

REPORT INFORMATION
  Report Type: 
  Country: None (occurrence: None)
  Receive Date: 20090806
  Receipt Date: 20090514
  Transmission Date: 20100115
  Serious: No
  Sender: FDA-Public Use
  Company Number: US-ABBOTT-09P-163-0573807-00

PATIENT
  Age: 51 Year
  Sex: Female

DRUGS (6)
  1. DEPAKOTE ER [Suspect]
     Indication: BIPOLAR DISORDER
     Route: 048
     Dates: start: 20081201, end: 20090201
  2. DIVALPROIC ACID [Suspect]
     Indication: BIPOLAR DISORDER
     Dates: start: 20090201, end: 20090416
  3. DIVALPROIC ACID [Suspect]
     Dates: start: 20090416, end: 20090430
  4. DIVALPROIC ACID [Suspect]
     Dates: start: 20090430
  5. SERRAQUIL [Concomitant]
     Indication: DRUG USE FOR UNKNOWN INDICATION
  6. LOMICTAL [Concomitant]
     Indication: DRUG USE FOR UNKNOWN INDICATION

REACTIONS (3)
  - DRUG LEVEL DECREASED [None]
  - FEELING ABNORMAL [None]
  - SOMNOLENCE [None]
